FAERS Safety Report 17564213 (Version 9)
Quarter: 2021Q4

REPORT INFORMATION
  Report Type: Other
  Country: CA (occurrence: CA)
  Receive Date: 20200320
  Receipt Date: 20211007
  Transmission Date: 20220303
  Serious: Yes (Other)
  Sender: FDA-Public Use
  Company Number: CA-ROCHE-2560368

PATIENT
  Age: 36 Year
  Sex: Male

DRUGS (2)
  1. OCREVUS [Suspect]
     Active Substance: OCRELIZUMAB
     Indication: Relapsing-remitting multiple sclerosis
     Dosage: 300 MG AT DAY 0 AND 14, THEN 600 MG EVERY 6 MONTH
     Route: 042
     Dates: start: 20200220
  2. OCREVUS [Suspect]
     Active Substance: OCRELIZUMAB
     Route: 042
     Dates: start: 20200305

REACTIONS (11)
  - Optic neuritis [Recovered/Resolved]
  - Ankle fracture [Recovering/Resolving]
  - Fibula fracture [Recovering/Resolving]
  - Infusion related reaction [Recovered/Resolved]
  - Asthenia [Recovering/Resolving]
  - Headache [Recovered/Resolved]
  - Myalgia [Not Recovered/Not Resolved]
  - Dizziness [Unknown]
  - Dizziness postural [Unknown]
  - Infusion related reaction [Recovered/Resolved]
  - Skin irritation [Recovered/Resolved]

NARRATIVE: CASE EVENT DATE: 20200220
